FAERS Safety Report 23112047 (Version 1)
Quarter: 2023Q4

REPORT INFORMATION
  Report Type: Spontaneous
  Country: NO (occurrence: NO)
  Receive Date: 20231026
  Receipt Date: 20231026
  Transmission Date: 20240110
  Serious: Yes (Other)
  Sender: FDA-Public Use
  Company Number: 23_00026049(0)

PATIENT
  Age: 7 Year
  Sex: Female

DRUGS (1)
  1. DEXMEDETOMIDINE HYDROCHLORIDE [Suspect]
     Active Substance: DEXMEDETOMIDINE HYDROCHLORIDE
     Indication: Premedication
     Dosage: 60 MICROGRAM, 1 IN 1 D
     Route: 065
     Dates: start: 20190508, end: 20190510

REACTIONS (4)
  - Myasthenia gravis [Unknown]
  - Muscular weakness [Unknown]
  - Dysphagia [Unknown]
  - Product administered to patient of inappropriate age [Unknown]

NARRATIVE: CASE EVENT DATE: 20190508
